FAERS Safety Report 17337222 (Version 1)
Quarter: 2020Q1

REPORT INFORMATION
  Report Type: Spontaneous
  Country: CA (occurrence: CA)
  Receive Date: 20200129
  Receipt Date: 20200129
  Transmission Date: 20200409
  Serious: Yes (Other)
  Sender: FDA-Public Use
  Company Number: CA-AUROBINDO-AUR-APL-2020-004108

PATIENT
  Age: 54 Year
  Sex: Male

DRUGS (5)
  1. HUMIRA [Suspect]
     Active Substance: ADALIMUMAB
     Indication: PRODUCT USED FOR UNKNOWN INDICATION
     Dosage: UNK
     Route: 065
  2. METFORMIN [Suspect]
     Active Substance: METFORMIN HYDROCHLORIDE
     Indication: DIABETES MELLITUS
     Dosage: UNK
     Route: 065
  3. SECUKINUMAB. [Suspect]
     Active Substance: SECUKINUMAB
     Indication: PSORIASIS
     Dosage: 300 MILLIGRAM (1 EVERY 1 MONTH)
     Route: 058
  4. SORIATANE [Suspect]
     Active Substance: ACITRETIN
     Indication: PRODUCT USED FOR UNKNOWN INDICATION
     Dosage: UNK
     Route: 065
  5. NEORAL [Suspect]
     Active Substance: CYCLOSPORINE
     Indication: PSORIASIS
     Dosage: 150 MILLIGRAM, TWO TIMES A DAY
     Route: 048

REACTIONS (13)
  - Blood creatine increased [Unknown]
  - Skin fissures [Unknown]
  - Pruritus [Unknown]
  - Arthropathy [Unknown]
  - Glycosylated haemoglobin increased [Unknown]
  - Hypertension [Unknown]
  - Pain [Unknown]
  - Psoriasis [Unknown]
  - Diabetes mellitus [Unknown]
  - Drug intolerance [Unknown]
  - Renal impairment [Unknown]
  - Skin plaque [Unknown]
  - Diarrhoea [Unknown]
